FAERS Safety Report 6269919-3 (Version None)
Quarter: 2009Q3

REPORT INFORMATION
  Report Type: 
  Country: None (occurrence: None)
  Receive Date: 20090716
  Receipt Date: 20090706
  Transmission Date: 20100115
  Serious: Yes (Hospitalization)
  Sender: FDA-Public Use
  Company Number: PHHY2009DE05086

PATIENT
  Sex: Female

DRUGS (8)
  1. ZOMETA [Suspect]
     Indication: METASTASES TO BONE
     Dosage: 4 MG EVERY 4 WEEKS
     Route: 042
     Dates: start: 20010801, end: 20080901
  2. TAXOL [Concomitant]
     Indication: BREAST CANCER
     Dosage: 80 MG/M?/D 1X WEEKLY
     Route: 042
     Dates: start: 20061101, end: 20070801
  3. EPIRUBICIN [Concomitant]
     Indication: BREAST CANCER
     Dosage: 30 MG/M?/D 1XWEEKLY
     Route: 042
     Dates: start: 20080601, end: 20080701
  4. CLEMASTINE FUMARATE [Concomitant]
     Dosage: 2 MG, QW
     Route: 042
     Dates: start: 20061101, end: 20070801
  5. KEVATRIL [Concomitant]
     Dosage: 1 MG, QW
     Dates: start: 20061101, end: 20070801
  6. RANITIDINE [Concomitant]
     Dosage: 50 MG, QW
     Dates: start: 20061101, end: 20070801
  7. FORTECORTIN [Concomitant]
     Dosage: 8 MG, QW
     Dates: start: 20061101, end: 20070801
  8. RADIOTHERAPY [Concomitant]

REACTIONS (7)
  - DEBRIDEMENT [None]
  - GENERAL ANAESTHESIA [None]
  - INFLAMMATION [None]
  - ORAL SURGERY [None]
  - OSTEONECROSIS [None]
  - PLASTIC SURGERY [None]
  - TOOTH EXTRACTION [None]
